FAERS Safety Report 15854521 (Version 1)
Quarter: 2019Q1

REPORT INFORMATION
  Report Type: Spontaneous
  Country: US (occurrence: US)
  Receive Date: 20190120
  Receipt Date: 20190120
  Transmission Date: 20190417
  Serious: Yes (Hospitalization, Disabling)
  Sender: FDA-Public Use
  Company Number: None

PATIENT
  Age: 50 Year
  Sex: Female
  Weight: 90.72 kg

DRUGS (1)
  1. CIPROFLOXACIN. [Suspect]
     Active Substance: CIPROFLOXACIN
     Indication: PNEUMONIA
     Dates: start: 20040101, end: 20180201

REACTIONS (4)
  - Muscular weakness [None]
  - Gait disturbance [None]
  - Balance disorder [None]
  - Neuropathy peripheral [None]

NARRATIVE: CASE EVENT DATE: 20150501
